FAERS Safety Report 12253922 (Version 2)
Quarter: 2016Q2

REPORT INFORMATION
  Report Type: Spontaneous
  Country: JP (occurrence: JP)
  Receive Date: 20160411
  Receipt Date: 20160615
  Transmission Date: 20160815
  Serious: Yes (Life-Threatening, Hospitalization, Disabling)
  Sender: FDA-Public Use
  Company Number: JP-SA-2016SA067829

PATIENT
  Age: 80 Year
  Sex: Male
  Weight: 68.2 kg

DRUGS (5)
  1. G-LASTA [Concomitant]
     Active Substance: PEGFILGRASTIM
     Indication: PROPHYLAXIS
     Route: 065
     Dates: start: 20160325, end: 20160325
  2. DECADRON [Concomitant]
     Active Substance: DEXAMETHASONE
     Indication: PREMEDICATION
     Dosage: DAILY DOSE, 6.6 MG
     Route: 042
     Dates: start: 20160324, end: 20160324
  3. POLARAMINE [Concomitant]
     Active Substance: DEXCHLORPHENIRAMINE MALEATE
     Indication: PREMEDICATION
     Dosage: DAILY DOSE, 5 MG
     Route: 042
     Dates: start: 20160324, end: 20160324
  4. FAMOTIDINE. [Concomitant]
     Active Substance: FAMOTIDINE
     Indication: PREMEDICATION
     Dosage: DAILY DOSE, 20 MG;
     Route: 042
     Dates: start: 20160324, end: 20160324
  5. JEVTANA [Suspect]
     Active Substance: CABAZITAXEL
     Indication: HORMONE-REFRACTORY PROSTATE CANCER
     Route: 042
     Dates: start: 20160324, end: 20160324

REACTIONS (7)
  - Corynebacterium infection [Not Recovered/Not Resolved]
  - Shock [Not Recovered/Not Resolved]
  - Depressed level of consciousness [Not Recovered/Not Resolved]
  - Hypoxic-ischaemic encephalopathy [Not Recovered/Not Resolved]
  - Pyrexia [Not Recovered/Not Resolved]
  - Febrile neutropenia [Not Recovered/Not Resolved]
  - Respiratory arrest [Not Recovered/Not Resolved]

NARRATIVE: CASE EVENT DATE: 20160329
